FAERS Safety Report 15376740 (Version 1)
Quarter: 2018Q3

REPORT INFORMATION
  Report Type: Report from Study
  Country: None (occurrence: US)
  Receive Date: 20180913
  Receipt Date: 20180913
  Transmission Date: 20181010
  Serious: Yes (Other)
  Sender: FDA-Public Use
  Company Number: US-ABBVIE-18K-163-2387704-00

PATIENT
  Age: 58 Year
  Sex: Female

DRUGS (2)
  1. HUMIRA [Suspect]
     Active Substance: ADALIMUMAB
     Indication: CROHN^S DISEASE
  2. HUMIRA [Suspect]
     Active Substance: ADALIMUMAB
     Indication: UVEITIS
     Route: 058

REACTIONS (6)
  - Dehydration [Unknown]
  - Calcinosis [Unknown]
  - Joint injury [Unknown]
  - Vision blurred [Unknown]
  - Fall [Unknown]
  - Eye inflammation [Unknown]

NARRATIVE: CASE EVENT DATE: 20160701
